FAERS Safety Report 20782440 (Version 9)
Quarter: 2024Q4

REPORT INFORMATION
  Report Type: Report from Study
  Country: CA (occurrence: CA)
  Receive Date: 20220504
  Receipt Date: 20241203
  Transmission Date: 20250115
  Serious: Yes (Other)
  Sender: ROCHE
  Company Number: CA-ROCHE-3089504

PATIENT
  Sex: Female

DRUGS (3)
  1. OCREVUS [Suspect]
     Active Substance: OCRELIZUMAB
     Indication: Relapsing-remitting multiple sclerosis
     Dosage: 300 MG AT DAY 0 AND 14, THEN 600 MG EVERY 6 MONTH
     Route: 042
     Dates: start: 20171130
  2. PREDNISONE [Suspect]
     Active Substance: PREDNISONE
     Indication: Product used for unknown indication
     Route: 065
  3. SYMBICORT [Concomitant]
     Active Substance: BUDESONIDE\FORMOTEROL FUMARATE DIHYDRATE

REACTIONS (8)
  - COVID-19 pneumonia [Unknown]
  - Feeling abnormal [Unknown]
  - White blood cell count increased [Recovered/Resolved]
  - Insomnia [Unknown]
  - Malaise [Unknown]
  - Drug intolerance [Unknown]
  - Nausea [Unknown]
  - Sepsis [Recovered/Resolved]
